FAERS Safety Report 6477899-0 (Version None)
Quarter: 2009Q4

REPORT INFORMATION
  Report Type: 
  Country: None (occurrence: None)
  Receive Date: 20091207
  Receipt Date: 20091109
  Transmission Date: 20100525
  Serious: No
  Sender: FDA-Public Use
  Company Number: US-BAYER-200916750BCC

PATIENT
  Age: 77 Year
  Sex: Female
  Weight: 65 kg

DRUGS (13)
  1. ALEVE [Suspect]
     Indication: BACK PAIN
     Dosage: TOTAL DAILY DOSE: 220 MG  UNIT DOSE: 220 MG
     Route: 048
     Dates: start: 20080101, end: 20091006
  2. ACTONEL [Concomitant]
     Route: 065
  3. SIMVASTATIN [Concomitant]
     Route: 065
  4. VITAMIN E [Concomitant]
     Route: 065
  5. CALTRATE CALCIUM PLUS D [Concomitant]
     Route: 065
  6. LYSENE [Concomitant]
     Route: 065
  7. ASCORBIC ACID [Concomitant]
     Route: 065
  8. FISH OIL [Concomitant]
     Route: 065
  9. LECITHIN [Concomitant]
     Route: 065
  10. MSM [Concomitant]
     Route: 065
  11. VITAMIN B-12 [Concomitant]
     Route: 065
  12. CENTRUM MULTIVITAMIN [Concomitant]
     Route: 065
  13. HYALURONIC ACID [Concomitant]
     Route: 065

REACTIONS (1)
  - LIP SWELLING [None]
